FAERS Safety Report 19394157 (Version 1)
Quarter: 2021Q2

REPORT INFORMATION
  Report Type: Report from Study
  Country: GB (occurrence: GB)
  Receive Date: 20210609
  Receipt Date: 20210609
  Transmission Date: 20210717
  Serious: Yes (Hospitalization, Other)
  Sender: FDA-Public Use
  Company Number: NVSC2021GB122577

PATIENT
  Sex: Male

DRUGS (3)
  1. SANDOSTATIN LAR DEPOT [Suspect]
     Active Substance: OCTREOTIDE ACETATE
  2. SANDOSTATIN LAR DEPOT [Suspect]
     Active Substance: OCTREOTIDE ACETATE
     Indication: NEUROENDOCRINE TUMOUR
     Dosage: 30 MG, Q2W
     Route: 030
     Dates: start: 201805
  3. SANDOSTATIN LAR DEPOT [Suspect]
     Active Substance: OCTREOTIDE ACETATE

REACTIONS (24)
  - Malignant neoplasm progression [Unknown]
  - Vision blurred [Unknown]
  - Nasopharyngitis [Unknown]
  - Groin pain [Unknown]
  - Abdominal pain upper [Unknown]
  - Diarrhoea [Unknown]
  - Metastases to spine [Unknown]
  - Visual impairment [Unknown]
  - Cough [Unknown]
  - Flatulence [Unknown]
  - Headache [Unknown]
  - Head discomfort [Unknown]
  - Inappropriate schedule of product administration [Unknown]
  - Metastases to central nervous system [Unknown]
  - Abdominal distension [Unknown]
  - Influenza like illness [Unknown]
  - Dyspnoea [Unknown]
  - Neuroendocrine tumour [Unknown]
  - Flushing [Unknown]
  - Hepatic steatosis [Unknown]
  - Lower respiratory tract infection [Unknown]
  - Nausea [Unknown]
  - Pain in extremity [Unknown]
  - Fatigue [Unknown]
